FAERS Safety Report 9083109 (Version 1)
Quarter: 2013Q1

REPORT INFORMATION
  Report Type: Report from Study
  Country: US (occurrence: US)
  Receive Date: 20130130
  Receipt Date: 20130130
  Transmission Date: 20140127
  Serious: Yes (Hospitalization)
  Sender: FDA-Public Use
  Company Number: US-ABBOTT-12P-163-0980391-00

PATIENT
  Sex: Female

DRUGS (1)
  1. HUMIRA [Suspect]
     Indication: POLYMYALGIA RHEUMATICA
     Dates: start: 201109, end: 201203

REACTIONS (3)
  - Furuncle [Recovered/Resolved]
  - Bacterial infection [Recovered/Resolved]
  - Off label use [Not Recovered/Not Resolved]
